FAERS Safety Report 26189569 (Version 1)
Quarter: 2025Q4

REPORT INFORMATION
  Report Type: Spontaneous
  Country: US (occurrence: US)
  Receive Date: 20251223
  Receipt Date: 20251223
  Transmission Date: 20260117
  Serious: No
  Sender: MICRO LABS LIMITED
  Company Number: US-MICRO LABS LIMITED-ML2025-06631

PATIENT
  Sex: Female

DRUGS (2)
  1. DORZOLAMIDE HYDROCHLORIDE OPHTHALMIC SOLUTION [Suspect]
     Active Substance: DORZOLAMIDE HYDROCHLORIDE
     Indication: Product used for unknown indication
     Dosage: DOSE: ONE DROP IN BOTH EYES?FREQUENCY: THREE TIMES DAILY
     Route: 047
     Dates: start: 20251209
  2. KETOROLAC TROMETHAMINE [Concomitant]
     Active Substance: KETOROLAC TROMETHAMINE
     Indication: Retinal oedema
     Dosage: SHE HAD ANOTHER DROP FOR THE FLUID ON HER RETINA ON THE BACK OF HER EYES, WHICH SHE WAS SUPPOSED TO

REACTIONS (4)
  - Product container issue [Unknown]
  - Product dose omission issue [Unknown]
  - Inadequate aseptic technique in use of product [Unknown]
  - No adverse event [Unknown]

NARRATIVE: CASE EVENT DATE: 20251209
